FAERS Safety Report 10141689 (Version 2)
Quarter: 2014Q2

REPORT INFORMATION
  Report Type: Spontaneous
  Country: US (occurrence: US)
  Receive Date: 20140429
  Receipt Date: 20140516
  Transmission Date: 20141212
  Serious: No
  Sender: FDA-Public Use
  Company Number: US-009507513-1404USA014999

PATIENT
  Sex: Female
  Weight: 56.69 kg

DRUGS (4)
  1. OXYTROL FOR WOMEN [Suspect]
     Indication: POLLAKIURIA
     Dosage: UNK, UNKNOWN
     Route: 062
     Dates: start: 2014
  2. TEMAZEPAM [Suspect]
     Indication: SLEEP DISORDER THERAPY
     Dosage: UNK, UNKNOWN
     Route: 048
  3. ELMIRON [Concomitant]
     Indication: CYSTITIS INTERSTITIAL
     Dosage: UNK, QOD
     Route: 065
  4. TRIMETHOPRIM [Concomitant]
     Indication: ANTIBIOTIC THERAPY
     Dosage: UNK, UNKNOWN
     Route: 065

REACTIONS (3)
  - Balance disorder [Not Recovered/Not Resolved]
  - Dry mouth [Not Recovered/Not Resolved]
  - Dizziness [Not Recovered/Not Resolved]
